FAERS Safety Report 9767956 (Version 3)
Quarter: 2014Q4

REPORT INFORMATION
  Report Type: Spontaneous
  Country: FR (occurrence: FR)
  Receive Date: 20131217
  Receipt Date: 20141110
  Transmission Date: 20150529
  Serious: Yes (Hospitalization, Other)
  Sender: FDA-Public Use
  Company Number: FR-TEVA-448934ISR

PATIENT
  Age: 80 Year
  Sex: Male
  Weight: 73 kg

DRUGS (2)
  1. LEVOFLOXACINE TEVA 500MG [Suspect]
     Active Substance: LEVOFLOXACIN
     Indication: CHRONIC SINUSITIS
     Dosage: 500 MILLIGRAM DAILY;
     Dates: start: 20121016, end: 201210
  2. NASOCORT [Concomitant]
     Active Substance: TRIAMCINOLONE ACETONIDE
     Indication: CHRONIC SINUSITIS

REACTIONS (5)
  - Thrombophlebitis superficial [Recovered/Resolved]
  - Tendon rupture [Recovered/Resolved]
  - Oedema peripheral [Unknown]
  - Muscle atrophy [Unknown]
  - Pain in extremity [Unknown]

NARRATIVE: CASE EVENT DATE: 201210
